FAERS Safety Report 25041418 (Version 2)
Quarter: 2025Q1

REPORT INFORMATION
  Report Type: Spontaneous
  Country: DZ (occurrence: DZ)
  Receive Date: 20250305
  Receipt Date: 20250312
  Transmission Date: 20250408
  Serious: Yes (Other)
  Sender: SANOFI AVENTIS
  Company Number: DZ-SA-2025SA059602

PATIENT
  Age: 55 Year
  Sex: Female

DRUGS (1)
  1. IRBESARTAN [Suspect]
     Active Substance: IRBESARTAN

REACTIONS (3)
  - Hypereosinophilic syndrome [Unknown]
  - Abdominal discomfort [Unknown]
  - Blood pressure increased [Unknown]
